FAERS Safety Report 8840844 (Version 1)
Quarter: 2012Q4

REPORT INFORMATION
  Report Type: 
  Country: US (occurrence: US)
  Receive Date: 20121015
  Receipt Date: 20121015
  Transmission Date: 20130627
  Serious: Yes (Hospitalization)
  Sender: FDA-Public Use
  Company Number: US-ROCHE-1140955

PATIENT
  Age: 38 Year
  Sex: Female

DRUGS (4)
  1. ROCEPHIN [Suspect]
     Indication: PRODUCT USED FOR UNKNOWN INDICATION
     Route: 042
  2. HEPARIN [Concomitant]
     Route: 065
     Dates: start: 20120925, end: 20120928
  3. LOVENOX [Concomitant]
  4. COUMADIN [Concomitant]

REACTIONS (6)
  - Deep vein thrombosis [Unknown]
  - Venous injury [Unknown]
  - Dyspnoea [Unknown]
  - Upper extremity mass [Unknown]
  - Chest pain [Unknown]
  - Device occlusion [Unknown]
